FAERS Safety Report 12762830 (Version 2)
Quarter: 2016Q3

REPORT INFORMATION
  Report Type: Spontaneous
  Country: US (occurrence: US)
  Receive Date: 20160920
  Receipt Date: 20160920
  Transmission Date: 20161109
  Serious: Yes (Other)
  Sender: FDA-Public Use
  Company Number: US-SA-2014SA010316

PATIENT
  Sex: Male

DRUGS (1)
  1. LANTUS [Suspect]
     Active Substance: INSULIN GLARGINE
     Indication: DIABETES MELLITUS
     Dosage: TAKEN FROM-3-4 YEARS AGO DOSE:70 UNIT(S)
     Route: 058

REACTIONS (2)
  - Drug dependence [Unknown]
  - Blood glucose increased [Unknown]
